FAERS Safety Report 7511501-1 (Version None)
Quarter: 2011Q2

REPORT INFORMATION
  Report Type: 
  Country: None (occurrence: None)
  Receive Date: 20110531
  Receipt Date: 20110519
  Transmission Date: 20111010
  Serious: Yes (Other)
  Sender: FDA-Public Use
  Company Number: DE-JNJFOC-20110506977

PATIENT
  Sex: Male

DRUGS (1)
  1. STELARA [Suspect]
     Indication: PSORIASIS
     Route: 058
     Dates: start: 20100419

REACTIONS (3)
  - AUTOIMMUNE HEPATITIS [None]
  - ANTIMITOCHONDRIAL ANTIBODY POSITIVE [None]
  - CHOLELITHIASIS [None]
